FAERS Safety Report 5336205-5 (Version None)
Quarter: 2007Q2

REPORT INFORMATION
  Report Type: 
  Country: None (occurrence: None)
  Receive Date: 20070315
  Receipt Date: 20061219
  Transmission Date: 20071010
  Serious: No
  Sender: FDA-Public Use
  Company Number: BDI-008963

PATIENT
  Age: 50 Year
  Sex: Female
  Weight: 63.64 kg

DRUGS (2)
  1. MULTIHANCE [Suspect]
     Indication: BREAST CANCER
     Dosage: 15 ML ONCE IV
     Route: 042
     Dates: start: 20061219, end: 20061219
  2. MULTIHANCE [Suspect]
     Indication: NUCLEAR MAGNETIC RESONANCE IMAGING
     Dosage: 15 ML ONCE IV
     Route: 042
     Dates: start: 20061219, end: 20061219

REACTIONS (2)
  - SWOLLEN TONGUE [None]
  - THROAT TIGHTNESS [None]
